FAERS Safety Report 9477567 (Version 3)
Quarter: 2014Q1

REPORT INFORMATION
  Report Type: Report from Study
  Country: US (occurrence: US)
  Receive Date: 20130827
  Receipt Date: 20140113
  Transmission Date: 20141002
  Serious: Yes (Hospitalization)
  Sender: FDA-Public Use
  Company Number: US-ACTELION-A-US2013-87392

PATIENT
  Age: 63 Year
  Sex: Female

DRUGS (5)
  1. VELETRI [Suspect]
     Indication: PULMONARY ARTERIAL HYPERTENSION
     Dosage: 21.5 NG/KG, UNK
     Route: 042
  2. VELETRI [Suspect]
     Dosage: 13.5 NG/KG, PER MIN
     Route: 042
     Dates: start: 20130607
  3. TRACLEER [Concomitant]
     Indication: PULMONARY ARTERIAL HYPERTENSION
     Route: 048
  4. LETAIRIS [Concomitant]
  5. COUMADIN [Concomitant]

REACTIONS (5)
  - Pneumonia [Unknown]
  - Dyspnoea [Unknown]
  - Oedema [Unknown]
  - Abdominal discomfort [Unknown]
  - Malaise [Unknown]
